FAERS Safety Report 20542852 (Version 1)
Quarter: 2022Q1

REPORT INFORMATION
  Report Type: Spontaneous
  Country: US (occurrence: US)
  Receive Date: 20220302
  Receipt Date: 20220302
  Transmission Date: 20220423
  Serious: Yes (Other)
  Sender: FDA-Public Use
  Company Number: US-PFIZER INC-202200314939

PATIENT
  Age: 63 Year
  Sex: Female
  Weight: 49.5 kg

DRUGS (4)
  1. MARCAINE [Suspect]
     Active Substance: BUPIVACAINE HYDROCHLORIDE
     Dosage: 150 MG, UNK
     Route: 042
     Dates: start: 20191227
  2. FENTANYL CITRATE [Suspect]
     Active Substance: FENTANYL CITRATE
     Dosage: 50 UG
     Route: 042
     Dates: start: 20191227
  3. VERSED [Concomitant]
     Active Substance: MIDAZOLAM HYDROCHLORIDE
     Dosage: 2 MG
     Route: 042
     Dates: start: 20191227
  4. TAGAMET [Concomitant]
     Active Substance: CIMETIDINE
     Indication: Gastric ulcer
     Dosage: UNK
     Dates: start: 20191227

REACTIONS (21)
  - Dose calculation error [Recovered/Resolved]
  - Respiratory failure [Recovered/Resolved]
  - Ventricular tachycardia [Recovered/Resolved]
  - Ventricular fibrillation [Recovered/Resolved]
  - Cardiogenic shock [Recovered/Resolved]
  - Cardiac failure [Recovered/Resolved]
  - Cardiac arrest [Recovered/Resolved]
  - Coma [Recovered/Resolved]
  - Pulse absent [Recovered/Resolved]
  - Electrocution [Recovered/Resolved]
  - Vomiting [Recovered/Resolved]
  - Dizziness [Recovered/Resolved]
  - Renal disorder [Recovered/Resolved]
  - Swelling [Recovered/Resolved]
  - Oedema peripheral [Recovered/Resolved]
  - Hypervolaemia [Recovered/Resolved]
  - Anxiety [Recovered/Resolved]
  - Insomnia [Recovered/Resolved]
  - Dyspnoea exertional [Recovered/Resolved]
  - Fall [Recovered/Resolved]
  - Paranoia [Unknown]

NARRATIVE: CASE EVENT DATE: 20191227
